FAERS Safety Report 4919215-9 (Version None)
Quarter: 2006Q1

REPORT INFORMATION
  Report Type: 
  Country: None (occurrence: None)
  Receive Date: 20060222
  Receipt Date: 20060215
  Transmission Date: 20060701
  Serious: Yes (Hospitalization)
  Sender: FDA-Public Use
  Company Number: FR-GILEAD-2006-0009233

PATIENT
  Sex: Female
  Weight: 40 kg

DRUGS (3)
  1. VIREAD [Suspect]
     Route: 048
     Dates: start: 20020515, end: 20060111
  2. EPIVIR [Concomitant]
     Route: 048
     Dates: start: 20000915
  3. KALETRA [Concomitant]
     Route: 048
     Dates: start: 20000915

REACTIONS (3)
  - ACIDOSIS [None]
  - RENAL FAILURE [None]
  - RENAL TUBULAR DISORDER [None]
